FAERS Safety Report 11267828 (Version 1)
Quarter: 2015Q3

REPORT INFORMATION
  Report Type: Spontaneous
  Country: US (occurrence: US)
  Receive Date: 20150713
  Receipt Date: 20150713
  Transmission Date: 20151125
  Serious: No
  Sender: FDA-Public Use
  Company Number: US-MPIJNJ-2014MPI000066

PATIENT
  Sex: Male
  Weight: 74.83 kg

DRUGS (1)
  1. VELCADE [Suspect]
     Active Substance: BORTEZOMIB
     Indication: PLASMA CELL MYELOMA
     Dosage: 2.3 MG, CYCLIC ( 1,4,8, AND 11 DAYS OF A 3 WEEK CYCLE FOR 8 CYCLES)
     Route: 042
     Dates: start: 201308

REACTIONS (1)
  - Diarrhoea [Recovering/Resolving]
